FAERS Safety Report 8131939-1 (Version None)
Quarter: 2012Q1

REPORT INFORMATION
  Report Type: 
  Country: None (occurrence: None)
  Receive Date: 20120208
  Receipt Date: 20120131
  Transmission Date: 20120608
  Serious: Yes (Hospitalization, Other)
  Sender: FDA-Public Use
  Company Number: AUR-APL-2012-00742

PATIENT
  Age: 57 Year
  Sex: Male

DRUGS (10)
  1. FERROUS SULFATE TAB [Concomitant]
  2. SEVELAMER (SEVELAMER) [Concomitant]
  3. DOCUSATE (DOCUSATE) [Concomitant]
  4. TAMSULOSIN HCL [Concomitant]
  5. LANTUS [Concomitant]
  6. LACTULOSE [Concomitant]
  7. FINASTERIDE [Concomitant]
  8. GABAPENTIN [Suspect]
     Indication: PRODUCT USED FOR UNKNOWN INDICATION
  9. DILTIAZEM [Concomitant]
  10. ASPIRIN [Concomitant]

REACTIONS (10)
  - MYOCLONUS [None]
  - RENAL TUBULAR NECROSIS [None]
  - SOMNOLENCE [None]
  - CONTINUOUS HAEMODIAFILTRATION [None]
  - TOXICITY TO VARIOUS AGENTS [None]
  - PAIN IN EXTREMITY [None]
  - ALTERED STATE OF CONSCIOUSNESS [None]
  - PROTEIN URINE PRESENT [None]
  - RENAL FAILURE ACUTE [None]
  - BLOOD URINE PRESENT [None]
